FAERS Safety Report 6711326-0 (Version None)
Quarter: 2010Q2

REPORT INFORMATION
  Report Type: 
  Country: None (occurrence: None)
  Receive Date: 20100505
  Receipt Date: 20100409
  Transmission Date: 20101027
  Serious: Yes (Death, Other)
  Sender: FDA-Public Use
  Company Number: US-SANOFI-AVENTIS-A03200904981

PATIENT
  Age: 61 Year
  Sex: Male
  Weight: 77 kg

DRUGS (23)
  1. DRONEDARONE HCL [Suspect]
     Dosage: UNIT DOSE: 400 MG
     Route: 048
     Dates: start: 20090913, end: 20090918
  2. AMIODARONE HCL [Suspect]
     Dosage: 1 MG/HR INTRAVENOUS PLUS 400 MG TWICE DAILY
     Route: 051
     Dates: start: 20090912, end: 20090913
  3. AMIODARONE HCL [Suspect]
     Route: 048
     Dates: start: 20090912, end: 20090913
  4. ASPIRIN [Concomitant]
  5. PROZAC [Concomitant]
  6. ADVAIR DISKUS 100/50 [Concomitant]
  7. COREG [Concomitant]
     Dosage: PATIENT HOSPITALIZED DOSE GIVEN AND HELD BASED ON CURRENT BP
     Route: 065
  8. CRESTOR [Concomitant]
  9. PERCOCET [Concomitant]
  10. ANZEMET [Concomitant]
  11. VALIUM [Concomitant]
  12. IMDUR [Concomitant]
  13. PLAVIX [Concomitant]
  14. MULTI-VITAMINS [Concomitant]
  15. LOVENOX [Concomitant]
  16. SODIUM BICARBONATE [Concomitant]
  17. INSULIN [Concomitant]
     Dosage: DOSE:5 UNIT(S)
  18. SPIRIVA [Concomitant]
  19. PRILOSEC [Concomitant]
  20. PREDNISONE [Concomitant]
  21. KEFLEX [Concomitant]
  22. THIAMINE [Concomitant]
  23. FOLIC ACID [Concomitant]

REACTIONS (7)
  - CARDIAC ARREST [None]
  - CARDIAC FAILURE [None]
  - DYSPNOEA [None]
  - HYPERKALAEMIA [None]
  - HYPOTENSION [None]
  - OFF LABEL USE [None]
  - VENTRICULAR TACHYCARDIA [None]
